FAERS Safety Report 6156861-1 (Version None)
Quarter: 2009Q2

REPORT INFORMATION
  Report Type: 
  Country: None (occurrence: None)
  Receive Date: 20090416
  Receipt Date: 20090414
  Transmission Date: 20091009
  Serious: Yes (Hospitalization)
  Sender: FDA-Public Use
  Company Number: US-BRISTOL-MYERS SQUIBB COMPANY-14570527

PATIENT
  Age: 50 Year
  Sex: Female
  Weight: 98 kg

DRUGS (4)
  1. ABILIFY [Suspect]
     Indication: DEPRESSION
     Dosage: TAKEN 5MG QD 3-4 YEARS-JAN09,THEN 15MG HS;1/2TABS:31MAR09;1TAB:01APR09 DOSE-RED 04MAR09;5MGQD
     Route: 048
  2. ARICEPT [Concomitant]
  3. DEPAKOTE [Concomitant]
  4. LOTENSIN [Concomitant]

REACTIONS (5)
  - CONTUSION [None]
  - DRUG INEFFECTIVE [None]
  - MENTAL DISORDER [None]
  - NIGHTMARE [None]
  - POOR QUALITY DRUG ADMINISTERED [None]
